FAERS Safety Report 19512997 (Version 2)
Quarter: 2022Q2

REPORT INFORMATION
  Report Type: Spontaneous
  Country: FR (occurrence: FR)
  Receive Date: 20210709
  Receipt Date: 20220425
  Transmission Date: 20220720
  Serious: Yes (Other)
  Sender: FDA-Public Use
  Company Number: None

PATIENT
  Age: 59 Year
  Sex: Male

DRUGS (8)
  1. DEXAMETHASONE [Suspect]
     Active Substance: DEXAMETHASONE
     Indication: Chemotherapy
     Dosage: J1, J2, J4; J5; J8; J9; J11; J12
     Route: 059
     Dates: start: 20201201, end: 20201213
  2. LOVENOX [Suspect]
     Active Substance: ENOXAPARIN SODIUM
     Indication: Infection prophylaxis
     Dosage: SOLUTION FOR INJECTION
     Route: 059
     Dates: start: 202012
  3. VALACYCLOVIR HYDROCHLORIDE [Suspect]
     Active Substance: VALACYCLOVIR HYDROCHLORIDE
     Indication: Infection prophylaxis
     Dosage: UNSPECIFIED
     Route: 048
     Dates: start: 202012, end: 202012
  4. BORTEZOMIB [Suspect]
     Active Substance: BORTEZOMIB
     Indication: Chemotherapy
     Dosage: 2 WEEKS OUT OF 3, 3.5 MG POWDER FOR SOLUTION FOR INJECTION
     Route: 059
     Dates: start: 202012
  5. PENICILLIN V [Suspect]
     Active Substance: PENICILLIN V
     Indication: Infection prophylaxis
     Dosage: UNSPECIFIED
     Route: 048
     Dates: start: 202012, end: 202012
  6. BACTRIM [Suspect]
     Active Substance: SULFAMETHOXAZOLE\TRIMETHOPRIM
     Indication: Infection prophylaxis
     Dosage: UNSPECIFIED
     Route: 048
     Dates: start: 202012, end: 202012
  7. LEUCOVORIN CALCIUM [Suspect]
     Active Substance: LEUCOVORIN CALCIUM
     Indication: Infection prophylaxis
     Dosage: UNSPECIFIED
     Route: 048
     Dates: start: 202012, end: 202012
  8. REVLIMID [Suspect]
     Active Substance: LENALIDOMIDE
     Indication: Chemotherapy
     Dosage: 1 G, QD
     Route: 059
     Dates: start: 20201201, end: 20201215

REACTIONS (3)
  - Acute generalised exanthematous pustulosis [Recovered/Resolved]
  - Asthenia [Recovered/Resolved]
  - Decreased appetite [Recovered/Resolved]

NARRATIVE: CASE EVENT DATE: 20201208
